FAERS Safety Report 15311366 (Version 1)
Quarter: 2018Q3

REPORT INFORMATION
  Report Type: Spontaneous
  Country: CA (occurrence: CA)
  Receive Date: 20180823
  Receipt Date: 20180823
  Transmission Date: 20181010
  Serious: Yes (Other)
  Sender: FDA-Public Use
  Company Number: CA-REGENERON PHARMACEUTICALS, INC.-2018-23572

PATIENT

DRUGS (5)
  1. METHOTREXATE. [Concomitant]
     Active Substance: METHOTREXATE
     Indication: RHEUMATOID ARTHRITIS
  2. EYLEA [Suspect]
     Active Substance: AFLIBERCEPT
     Indication: CHOROIDAL NEOVASCULARISATION
     Dosage: UNK
  3. PREDNISONE. [Concomitant]
     Active Substance: PREDNISONE
     Indication: PRODUCT USED FOR UNKNOWN INDICATION
  4. BETADINE [Concomitant]
     Active Substance: POVIDONE-IODINE
     Indication: INFECTION PROPHYLAXIS
  5. EYLEA [Suspect]
     Active Substance: AFLIBERCEPT
     Dosage: UNK, LAST INJECTION PRIOR TO EVENT
     Dates: start: 20170222, end: 20170222

REACTIONS (4)
  - Inadequate aseptic technique in use of product [Unknown]
  - Intraocular pressure increased [Unknown]
  - Blindness transient [Recovered/Resolved]
  - Endophthalmitis [Recovered/Resolved]

NARRATIVE: CASE EVENT DATE: 20170226
